FAERS Safety Report 13707418 (Version 4)
Quarter: 2017Q3

REPORT INFORMATION
  Report Type: Report from Study
  Country: DE (occurrence: DE)
  Receive Date: 20170630
  Receipt Date: 20170725
  Transmission Date: 20171127
  Serious: Yes (Hospitalization)
  Sender: FDA-Public Use
  Company Number: PHHO2017DE009551

PATIENT
  Age: 68 Year
  Sex: Female
  Weight: 66 kg

DRUGS (5)
  1. CGS 20267 [Suspect]
     Active Substance: LETROZOLE
     Indication: BREAST CANCER
     Dosage: 2.5 MG, UNK
     Route: 048
     Dates: start: 20170510
  2. PROCORALAN [Concomitant]
     Active Substance: IVABRADINE
     Indication: TACHYCARDIA
     Dosage: 5 MG, BID
     Route: 048
     Dates: start: 20170510, end: 20170516
  3. LEE011 [Suspect]
     Active Substance: RIBOCICLIB
     Indication: BREAST CANCER
     Dosage: 600 MG, UNK
     Route: 048
     Dates: start: 20170510, end: 20170530
  4. PROCORALAN [Concomitant]
     Active Substance: IVABRADINE
     Dosage: 5 MG, QD
     Route: 048
     Dates: start: 20170607, end: 20170621
  5. LEE011 [Suspect]
     Active Substance: RIBOCICLIB
     Dosage: 600 MG, UNK
     Route: 048
     Dates: start: 20170607, end: 20170620

REACTIONS (1)
  - Hyperthyroidism [Recovering/Resolving]

NARRATIVE: CASE EVENT DATE: 20170621
